FAERS Safety Report 7385287 (Version 2)
Quarter: 2013Q3

REPORT INFORMATION
  Report Type: Report from Study
  Country: US (occurrence: US)
  Receive Date: 20100512
  Receipt Date: 20130805
  Transmission Date: 20140515
  Serious: Yes (Hospitalization, Other)
  Sender: FDA-Public Use
  Company Number: PHHO2010US06437

PATIENT
  Age: 80 Year
  Sex: Female

DRUGS (18)
  1. CGS 20267 [Suspect]
     Indication: BREAST CANCER
     Dosage: UNK
     Route: 048
     Dates: start: 20070823, end: 20091009
  2. MIRAPEX [Concomitant]
     Indication: MUSCLE SPASMS
  3. ALLOPURINOL [Concomitant]
     Indication: GOUT
  4. IMODIUM [Concomitant]
     Indication: DIARRHOEA
  5. KLOR-CON [Concomitant]
  6. FUROSEMIDE [Concomitant]
     Indication: FLUID RETENTION
  7. CELEBREX [Concomitant]
     Indication: ARTHRITIS
  8. BYSTOLIC [Concomitant]
     Indication: HYPERTENSION
     Dosage: UNK
  9. ISOSORBIDE MONONITRATE [Concomitant]
     Indication: PROPHYLAXIS
     Dosage: UNK
  10. ATENOLOL [Concomitant]
     Indication: HYPERTENSION
  11. ASA [Concomitant]
     Indication: PROPHYLAXIS
  12. CLONAZEPAM [Concomitant]
     Indication: RESTLESS LEGS SYNDROME
  13. KEFLEX [Concomitant]
     Indication: BREAST INFLAMMATION
  14. DARVOCET-N [Concomitant]
     Indication: ARTHRITIS
  15. VERAPAMIL [Concomitant]
     Indication: HYPERTENSION
  16. CARDIZEM [Concomitant]
  17. AMITRIPTYLINE [Concomitant]
     Indication: INSOMNIA
  18. MICARDIS [Concomitant]

REACTIONS (12)
  - Coronary artery disease [Unknown]
  - Renal failure acute [Unknown]
  - Hyperlipidaemia [Unknown]
  - Coronary artery stenosis [Unknown]
  - Chest discomfort [Unknown]
  - Cardioversion [Unknown]
  - Mitral valve incompetence [Unknown]
  - Fatigue [Unknown]
  - Feeling abnormal [Unknown]
  - Angina pectoris [Recovered/Resolved]
  - Atrial fibrillation [Unknown]
  - Hyperglycaemia [Unknown]
